FAERS Safety Report 10933732 (Version 2)
Quarter: 2015Q1

REPORT INFORMATION
  Report Type: Spontaneous
  Country: DE (occurrence: DE)
  Receive Date: 20150320
  Receipt Date: 20150323
  Transmission Date: 20150721
  Serious: Yes (Other)
  Sender: FDA-Public Use
  Company Number: DE-ABBVIE-15P-062-1359627-00

PATIENT
  Age: 54 Year
  Sex: Male

DRUGS (1)
  1. ADALIMUMAB [Suspect]
     Active Substance: ADALIMUMAB
     Indication: ANKYLOSING SPONDYLITIS
     Route: 065
     Dates: start: 2010

REACTIONS (2)
  - Hypersensitivity vasculitis [Recovered/Resolved]
  - IgA nephropathy [Recovering/Resolving]

NARRATIVE: CASE EVENT DATE: 2012
